FAERS Safety Report 13560710 (Version 5)
Quarter: 2019Q2

REPORT INFORMATION
  Report Type: Report from Study
  Country: PL (occurrence: PL)
  Receive Date: 20170518
  Receipt Date: 20190516
  Transmission Date: 20190711
  Serious: Yes (Hospitalization)
  Sender: FDA-Public Use
  Company Number: PL-ROCHE-1924494

PATIENT
  Age: 67 Year
  Sex: Female
  Weight: 90 kg

DRUGS (12)
  1. ATORVASTATINUM [Concomitant]
     Route: 048
  2. VEMURAFENIB. [Suspect]
     Active Substance: VEMURAFENIB
     Indication: MALIGNANT MELANOMA
     Dosage: MOST RECENT DOSE: 20/APR/2017 (THREE TABLETS)?STARTING DOSE AS PER PROTOCOL
     Route: 048
     Dates: start: 20170307
  3. BILASTINE [Concomitant]
     Active Substance: BILASTINE
     Indication: RASH
     Route: 048
     Dates: start: 20170418, end: 20170420
  4. PANTOPRAZOLE [Concomitant]
     Active Substance: PANTOPRAZOLE
     Indication: ABDOMINAL PAIN
  5. PANTOPRAZOLE [Concomitant]
     Active Substance: PANTOPRAZOLE
     Indication: ABDOMINAL PAIN UPPER
     Route: 048
     Dates: start: 20140412
  6. ATEZOLIZUMAB. [Suspect]
     Active Substance: ATEZOLIZUMAB
     Indication: MALIGNANT MELANOMA
     Dosage: MOST RECENT DOSE: 18/APR/2017.
     Route: 042
     Dates: start: 20170404
  7. COBIMETINIB. [Suspect]
     Active Substance: COBIMETINIB
     Indication: MALIGNANT MELANOMA
     Dosage: MOST RECENT DOSE: 20/APR/2017 (60 MG).?STARTING DOSE AND FREQUENCY AS PER PROTOCOL
     Route: 048
     Dates: start: 20170307
  8. RAMIPRILUM [Concomitant]
     Indication: HYPERTENSION
     Route: 048
  9. ASPIRIN. [Concomitant]
     Active Substance: ASPIRIN
     Route: 048
  10. AMLODIPINUM [Concomitant]
     Indication: HYPERTENSION
     Route: 048
  11. MUCIN [Concomitant]
     Indication: DRY MOUTH
     Dosage: DOSE: 1 PUFF.
     Route: 061
     Dates: start: 20170419
  12. BILASTINE [Concomitant]
     Active Substance: BILASTINE
     Route: 048
     Dates: start: 20170418, end: 20170511

REACTIONS (2)
  - Rhabdomyolysis [Recovered/Resolved]
  - Pneumonia [Recovered/Resolved]

NARRATIVE: CASE EVENT DATE: 20170420
